FAERS Safety Report 7802016-1 (Version None)
Quarter: 2011Q4

REPORT INFORMATION
  Report Type: 
  Country: None (occurrence: None)
  Receive Date: 20111007
  Receipt Date: 20111005
  Transmission Date: 20120403
  Serious: Yes (Death, Hospitalization, Other)
  Sender: FDA-Public Use
  Company Number: PHFR2011GB04740

PATIENT
  Sex: Male

DRUGS (6)
  1. CLOZAPINE [Suspect]
     Indication: SCHIZOPHRENIA
     Dates: start: 19950703
  2. HYOSCINE HYDROBROMIDE [Concomitant]
     Indication: SALIVARY HYPERSECRETION
     Route: 048
     Dates: start: 20020101, end: 20110802
  3. LANSOPRAZOLE [Concomitant]
     Indication: DYSPEPSIA
     Dosage: 15 MG
     Route: 048
     Dates: end: 20110802
  4. AMISULPRIDE [Suspect]
     Indication: SCHIZOPHRENIA
     Dosage: 800 MG
     Dates: start: 20030101, end: 20110802
  5. CLOZAPINE [Suspect]
     Dosage: 800 MG, DAILY
     Route: 048
     Dates: end: 20110802
  6. MAXEPA [Concomitant]
     Indication: SCHIZOPHRENIA
     Dosage: 10 MG
     Route: 048
     Dates: start: 20100101, end: 20110802

REACTIONS (8)
  - COUGH [None]
  - PNEUMONIA [None]
  - URINARY TRACT OBSTRUCTION [None]
  - CIRCULATORY COLLAPSE [None]
  - MULTI-ORGAN FAILURE [None]
  - INFECTION [None]
  - HAEMORRHAGE [None]
  - WHEEZING [None]
